FAERS Safety Report 4394308-6 (Version None)
Quarter: 2004Q3

REPORT INFORMATION
  Report Type: 
  Country: None (occurrence: None)
  Receive Date: 20040707
  Receipt Date: 20040707
  Transmission Date: 20050211
  Serious: Yes (Life-Threatening)
  Sender: FDA-Public Use
  Company Number: None

PATIENT
  Age: 65 Year
  Sex: Male
  Weight: 120.6 kg

DRUGS (1)
  1. ROSIGLITAZONE 8 MG [Suspect]
     Indication: DIABETES MELLITUS
     Dosage: 8 MG QD ORAL
     Route: 048
     Dates: start: 20031204, end: 20040603

REACTIONS (2)
  - CARDIAC FAILURE CONGESTIVE [None]
  - FLUID RETENTION [None]
